FAERS Safety Report 7380399-7 (Version None)
Quarter: 2011Q1

REPORT INFORMATION
  Report Type: 
  Country: None (occurrence: None)
  Receive Date: 20110324
  Receipt Date: 20110324
  Transmission Date: 20110831
  Serious: Yes (Hospitalization, Disabling)
  Sender: FDA-Public Use
  Company Number: None

PATIENT
  Age: 67 Year
  Sex: Female

DRUGS (8)
  1. DEPAKOTE [Suspect]
     Indication: BIPOLAR DISORDER
     Dosage: 500MG TID PO
     Route: 048
     Dates: start: 20071209, end: 20100322
  2. RENVELA [Concomitant]
  3. ASPIRIN [Concomitant]
  4. METAMUCIL-2 [Concomitant]
  5. LEXAPRO [Concomitant]
  6. KLONOPIN [Concomitant]
  7. NEXIUM [Concomitant]
  8. COLACE [Concomitant]

REACTIONS (6)
  - ALANINE AMINOTRANSFERASE INCREASED [None]
  - MENTAL STATUS CHANGES [None]
  - RESPIRATORY ACIDOSIS [None]
  - TOXICITY TO VARIOUS AGENTS [None]
  - ASPARTATE AMINOTRANSFERASE INCREASED [None]
  - BLOOD ALKALINE PHOSPHATASE INCREASED [None]
